FAERS Safety Report 25435234 (Version 1)
Quarter: 2025Q2

REPORT INFORMATION
  Report Type: Spontaneous
  Country: US (occurrence: US)
  Receive Date: 20250613
  Receipt Date: 20250613
  Transmission Date: 20250716
  Serious: Yes (Other)
  Sender: SANDOZ
  Company Number: US-SANDOZ-SDZ2025US040287

PATIENT
  Sex: Male

DRUGS (3)
  1. CARBOPLATIN [Suspect]
     Active Substance: CARBOPLATIN
     Indication: Neuroendocrine cancer of the prostate metastatic
     Route: 065
     Dates: start: 2024
  2. ETOPOSIDE [Suspect]
     Active Substance: ETOPOSIDE
     Indication: Neuroendocrine cancer of the prostate metastatic
     Route: 065
     Dates: start: 2024
  3. LURBINECTEDIN [Suspect]
     Active Substance: LURBINECTEDIN
     Indication: Neuroendocrine cancer of the prostate metastatic
     Route: 065

REACTIONS (2)
  - Neuroendocrine cancer of the prostate metastatic [Unknown]
  - Disease progression [Unknown]
